FAERS Safety Report 5510712-4 (Version None)
Quarter: 2007Q4

REPORT INFORMATION
  Report Type: 
  Country: None (occurrence: None)
  Receive Date: 20071108
  Receipt Date: 20071102
  Transmission Date: 20080405
  Serious: Yes (Other)
  Sender: FDA-Public Use
  Company Number: A0691238A

PATIENT
  Sex: Male

DRUGS (2)
  1. CARVEDILOL [Suspect]
     Route: 048
     Dates: start: 20070101
  2. CONCURRENT MEDICATIONS [Concomitant]

REACTIONS (1)
  - HAEMORRHAGIC DISORDER [None]
